FAERS Safety Report 25687399 (Version 2)
Quarter: 2025Q3

REPORT INFORMATION
  Report Type: Report from Study
  Country: CA (occurrence: CA)
  Receive Date: 20250816
  Receipt Date: 20250820
  Transmission Date: 20251021
  Serious: Yes (Other)
  Sender: CSL BEHRING
  Company Number: US-BEH-2025215316

PATIENT
  Sex: Female
  Weight: 86 kg

DRUGS (2)
  1. HIZENTRA [Suspect]
     Active Substance: HUMAN IMMUNOGLOBULIN G
     Indication: Chronic inflammatory demyelinating polyradiculoneuropathy
     Dosage: 10 G, QW
     Route: 058
     Dates: start: 202002
  2. HIZENTRA [Suspect]
     Active Substance: HUMAN IMMUNOGLOBULIN G
     Indication: Chronic inflammatory demyelinating polyradiculoneuropathy
     Dosage: 10 G, QW
     Route: 058
     Dates: start: 202002

REACTIONS (17)
  - Drug ineffective [Unknown]
  - Oropharyngeal blistering [Unknown]
  - Malaise [Unknown]
  - Hypersensitivity [Unknown]
  - Infusion site reaction [Unknown]
  - Chills [Unknown]
  - Pyrexia [Unknown]
  - Oropharyngeal pain [Unknown]
  - Throat tightness [Unknown]
  - Oral mucosal blistering [Unknown]
  - Cough [Unknown]
  - Asthma [Unknown]
  - Bronchitis [Unknown]
  - Sinusitis [Unknown]
  - Migraine [Unknown]
  - Nausea [Unknown]
  - Vomiting [Unknown]
